FAERS Safety Report 17175754 (Version 2)
Quarter: 2019Q4

REPORT INFORMATION
  Report Type: Spontaneous
  Country: FR (occurrence: FR)
  Receive Date: 20191219
  Receipt Date: 20191226
  Transmission Date: 20200122
  Serious: Yes (Life-Threatening, Hospitalization, Other)
  Sender: FDA-Public Use
  Company Number: FR-MYLANLABS-2019M1124845

PATIENT
  Age: 14 Year
  Sex: Female
  Weight: 74 kg

DRUGS (20)
  1. TARGOCID [Concomitant]
     Active Substance: TEICOPLANIN
     Indication: APLASIA
     Dosage: DOSE: 900 MG QD DURATION: CONTINUING
     Route: 042
     Dates: start: 200509
  2. MOPRAL                             /00661201/ [Interacting]
     Active Substance: OMEPRAZOLE SODIUM
     Indication: NAUSEA
     Dosage: UNK
     Route: 048
     Dates: start: 20050917
  3. NOXAFIL [Interacting]
     Active Substance: POSACONAZOLE
     Indication: FUNGAL INFECTION
     Dosage: UNK, TOTAL
     Route: 048
     Dates: start: 20050930
  4. AMPHOTERICIN B, LIPOSOME [Concomitant]
     Active Substance: AMPHOTERICIN B
     Indication: ANTIFUNGAL TREATMENT
     Dosage: UNK
     Dates: start: 20050903, end: 20050917
  5. LEUPRORELIN ACETATE [Concomitant]
     Active Substance: LEUPROLIDE ACETATE
     Dosage: DOSE: EVERY 3 MONTH DURATION: UNKNOWN
     Route: 042
     Dates: start: 200508
  6. MYCOSTATINE [Concomitant]
     Active Substance: NYSTATIN
     Dosage: DUR. OF TREATMENT TO EVENT: 13 DAY
     Route: 048
     Dates: start: 20050917, end: 20050929
  7. SILOMAT                            /00096702/ [Concomitant]
     Active Substance: CLOBUTINOL
     Dosage: UNK
  8. VORICONAZOLE. [Suspect]
     Active Substance: VORICONAZOLE
     Indication: FUNGAL INFECTION
     Dosage: 300 MILLIGRAM, BID
     Route: 042
     Dates: start: 20050912, end: 20050929
  9. MOPRAL                             /00661201/ [Interacting]
     Active Substance: OMEPRAZOLE SODIUM
     Indication: VOMITING
     Dosage: UNK
     Route: 048
  10. NOXAFIL [Interacting]
     Active Substance: POSACONAZOLE
     Indication: MUCORMYCOSIS
     Dosage: 200 MILLIGRAM
     Route: 048
     Dates: start: 20050930, end: 20050930
  11. VORICONAZOLE. [Interacting]
     Active Substance: VORICONAZOLE
     Indication: ASPERGILLUS INFECTION
     Dosage: 600 MILLIGRAM, QD (300 MG TWICE A DAY)
     Route: 042
     Dates: start: 20050915, end: 20050929
  12. CASPOFUNGIN ACETATE. [Concomitant]
     Active Substance: CASPOFUNGIN ACETATE
     Indication: FUNGAL INFECTION
     Dosage: DUR. OF TREATMENT TO EVENT: 9 DAY
     Route: 042
     Dates: start: 20050921
  13. FORTUM                             /00559701/ [Concomitant]
     Active Substance: CEFTAZIDIME
     Indication: PYREXIA
     Dosage: UNK
  14. PRIMPERAN [Concomitant]
     Active Substance: METOCLOPRAMIDE HYDROCHLORIDE
     Indication: NAUSEA
     Dosage: DOSE:1 AMP TID DURATION: CONTINUING
     Route: 042
     Dates: start: 200508
  15. VANCOMYCIN [Concomitant]
     Active Substance: VANCOMYCIN
     Indication: FEBRILE NEUTROPENIA
     Dosage: UNK
     Route: 042
  16. CASPOFUNGIN [Concomitant]
     Active Substance: CASPOFUNGIN
     Indication: FUNGAL INFECTION
     Dosage: UNK
     Route: 042
     Dates: start: 20050917
  17. POLARAMINE [Concomitant]
     Active Substance: DEXCHLORPHENIRAMINE MALEATE
     Indication: PRURITUS
     Dosage: DOSE:1 AMP TID DURATION: CONTINUING
     Route: 042
     Dates: start: 200508
  18. ONDANSETRON [Concomitant]
     Active Substance: ONDANSETRON
     Indication: NAUSEA
     Dosage: 16 MILLIGRAM, QD (8 MG, BID)
     Route: 065
     Dates: start: 200508
  19. ATARAX [Concomitant]
     Active Substance: HYDROXYZINE HYDROCHLORIDE
     Indication: NERVOUSNESS
     Dosage: DOSE: 30 MG TID DURATION: CONTINUING
     Route: 042
     Dates: start: 200508
  20. PIPERACILLIN/TAZOBACTAM [Concomitant]
     Active Substance: PIPERACILLIN SODIUM\TAZOBACTAM SODIUM
     Indication: FEBRILE NEUTROPENIA
     Dosage: UNK
     Route: 042

REACTIONS (9)
  - Thrombocytopenia [Unknown]
  - Renal failure [Unknown]
  - Cardiac arrest [Recovered/Resolved]
  - Hypomagnesaemia [Unknown]
  - Torsade de pointes [Recovered/Resolved]
  - Electrocardiogram QT prolonged [Not Recovered/Not Resolved]
  - Drug interaction [Recovered/Resolved]
  - Drug level increased [Unknown]
  - Ventricular fibrillation [Recovered/Resolved]

NARRATIVE: CASE EVENT DATE: 20050930
